FAERS Safety Report 16441814 (Version 1)
Quarter: 2019Q2

REPORT INFORMATION
  Report Type: Report from Study
  Country: None (occurrence: US)
  Receive Date: 20190617
  Receipt Date: 20190617
  Transmission Date: 20190711
  Serious: No
  Sender: FDA-Public Use
  Company Number: US-US WORLDMEDS, LLC-USW201807-001128

PATIENT
  Age: 76 Year
  Sex: Male
  Weight: 73.48 kg

DRUGS (21)
  1. XADAGO [Concomitant]
     Active Substance: SAFINAMIDE MESYLATE
  2. PRAMIPEXOLE. [Concomitant]
     Active Substance: PRAMIPEXOLE
  3. SYSTANE (HYPROMELLOSE 2910 (4000 MPA.S)) [Concomitant]
     Active Substance: HYPROMELLOSE 2910 (4000 MPA.S)
     Route: 047
  4. SINEMET [Concomitant]
     Active Substance: CARBIDOPA\LEVODOPA
  5. LOSARTAN. [Concomitant]
     Active Substance: LOSARTAN
  6. GABAPENTIN. [Concomitant]
     Active Substance: GABAPENTIN
  7. MELATONIN [Concomitant]
     Active Substance: MELATONIN
  8. MUCINEX [Concomitant]
     Active Substance: GUAIFENESIN
  9. MODAFINIL. [Concomitant]
     Active Substance: MODAFINIL
  10. BLINK GEL [Concomitant]
  11. APOKYN [Suspect]
     Active Substance: APOMORPHINE HYDROCHLORIDE
     Indication: PARKINSON^S DISEASE
     Route: 058
     Dates: start: 20180621
  12. TYLENOL PM [Concomitant]
     Active Substance: ACETAMINOPHEN\DIPHENHYDRAMINE
  13. APOKYN [Suspect]
     Active Substance: APOMORPHINE HYDROCHLORIDE
  14. PIOGLITAZONE. [Concomitant]
     Active Substance: PIOGLITAZONE
  15. AZELASTINE. [Concomitant]
     Active Substance: AZELASTINE HYDROCHLORIDE
  16. ASA [Concomitant]
     Active Substance: ASPIRIN
  17. APOKYN [Suspect]
     Active Substance: APOMORPHINE HYDROCHLORIDE
  18. OMEPRAZOLE. [Concomitant]
     Active Substance: OMEPRAZOLE
  19. CURCUMIN [Concomitant]
     Active Substance: CURCUMIN
  20. DICLOFENAC [Concomitant]
     Active Substance: DICLOFENAC
  21. CINNAMON. [Concomitant]
     Active Substance: CINNAMON

REACTIONS (4)
  - Nervousness [Recovered/Resolved]
  - Depression [Recovered/Resolved]
  - Hypokinesia [Recovered/Resolved]
  - Drug ineffective [Unknown]

NARRATIVE: CASE EVENT DATE: 20180501
